FAERS Safety Report 13767443 (Version 5)
Quarter: 2018Q1

REPORT INFORMATION
  Report Type: Report from Study
  Country: BR (occurrence: BR)
  Receive Date: 20170719
  Receipt Date: 20180315
  Transmission Date: 20180508
  Serious: Yes (Hospitalization, Other)
  Sender: FDA-Public Use
  Company Number: BR-GLAXOSMITHKLINE-BR2015GSK176418

PATIENT
  Age: 41 Year
  Sex: Female
  Weight: 73 kg

DRUGS (6)
  1. BELIMUMAB [Suspect]
     Active Substance: BELIMUMAB
     Dosage: 400 MG, UNK
     Dates: start: 20170913
  2. PREBICTAL [Concomitant]
     Active Substance: PREGABALIN
     Indication: PAIN
     Dosage: 150 MG, BID
  3. BELIMUMAB [Suspect]
     Active Substance: BELIMUMAB
     Indication: SYSTEMIC LUPUS ERYTHEMATOSUS
     Dosage: UNK UNK, CYC
     Dates: start: 20151127
  4. VENLIFT [Concomitant]
     Active Substance: VENLAFAXINE HYDROCHLORIDE
     Indication: PRODUCT USED FOR UNKNOWN INDICATION
     Dosage: UNK
  5. SERTRALINE [Suspect]
     Active Substance: SERTRALINE HYDROCHLORIDE
     Indication: DEPRESSION
     Dosage: UNK
  6. ITRACONAZOLE. [Suspect]
     Active Substance: ITRACONAZOLE
     Indication: PRODUCT USED FOR UNKNOWN INDICATION
     Dosage: 400 MG, UNK

REACTIONS (49)
  - Lactose intolerance [Unknown]
  - Disease recurrence [Unknown]
  - Skin burning sensation [Unknown]
  - Product supply issue [Unknown]
  - Paraesthesia [Unknown]
  - Drug ineffective [Not Recovered/Not Resolved]
  - Therapeutic response unexpected [Unknown]
  - Circumstance or information capable of leading to medication error [Unknown]
  - Arthralgia [Unknown]
  - Anxiety [Unknown]
  - Inappropriate schedule of drug administration [Unknown]
  - Drug dose omission [Unknown]
  - Hepatotoxicity [Unknown]
  - Headache [Unknown]
  - Pruritus [Unknown]
  - Tachycardia [Unknown]
  - Increased appetite [Unknown]
  - Overdose [Unknown]
  - Dyspnoea [Unknown]
  - Hypersensitivity [Unknown]
  - Malaise [Unknown]
  - Nausea [Unknown]
  - Panic disorder [Unknown]
  - Skin wound [Unknown]
  - Depression [Unknown]
  - Asthenia [Unknown]
  - Emotional distress [Unknown]
  - Glucose tolerance impaired [Unknown]
  - Nervousness [Unknown]
  - Skin discolouration [Unknown]
  - Weight increased [Unknown]
  - Ill-defined disorder [Recovered/Resolved]
  - Pneumonia [Unknown]
  - Burning sensation [Unknown]
  - Cystitis [Unknown]
  - Crying [Unknown]
  - Emotional disorder [Unknown]
  - Fear [Unknown]
  - Hypertension [Unknown]
  - Hyperaesthesia [Unknown]
  - Skin irritation [Unknown]
  - Skin disorder [Unknown]
  - Bacterial infection [Unknown]
  - Liver disorder [Unknown]
  - Bone pain [Unknown]
  - Panic reaction [Unknown]
  - Rash papular [Unknown]
  - Depressed mood [Unknown]
  - Condition aggravated [Unknown]

NARRATIVE: CASE EVENT DATE: 20170510
